FAERS Safety Report 19516966 (Version 4)
Quarter: 2021Q3

REPORT INFORMATION
  Report Type: Report from Study
  Country: None (occurrence: RO)
  Receive Date: 20210711
  Receipt Date: 20210811
  Transmission Date: 20211014
  Serious: Yes (Hospitalization)
  Sender: FDA-Public Use
  Company Number: RO-ABBVIE-21K-135-3981165-00

PATIENT
  Age: 70 Year
  Sex: Male

DRUGS (2)
  1. DUODOPA [Suspect]
     Active Substance: CARBIDOPA\LEVODOPA
     Indication: PARKINSON^S DISEASE
     Dosage: DM=8.00 DC=3.50 ED=1.00 NRED=0; DMN=0.00 DCN=0.00 EDN=0.00 NREDN=0
     Route: 050
     Dates: start: 20180516
  2. DUODOPA [Suspect]
     Active Substance: CARBIDOPA\LEVODOPA

REACTIONS (9)
  - Testicular pain [Recovered/Resolved]
  - Testicular pain [Recovered/Resolved]
  - Epididymitis [Recovered/Resolved]
  - Leukocytosis [Recovering/Resolving]
  - Spermatic cord inflammation [Recovering/Resolving]
  - Pain [Recovered/Resolved]
  - Inguinal hernia [Not Recovered/Not Resolved]
  - Orchitis [Recovered/Resolved]
  - Urinary tract infection [Recovering/Resolving]

NARRATIVE: CASE EVENT DATE: 20210702
